FAERS Safety Report 15979903 (Version 2)
Quarter: 2019Q2

REPORT INFORMATION
  Report Type: Spontaneous
  Country: FR (occurrence: FR)
  Receive Date: 20190219
  Receipt Date: 20190425
  Transmission Date: 20190711
  Serious: Yes (Other)
  Sender: FDA-Public Use
  Company Number: FR-CELLTRION INC.-2019FR018660

PATIENT

DRUGS (1)
  1. RITUXIMAB (UNKNOWN) [Suspect]
     Active Substance: RITUXIMAB
     Indication: LICHEN PLANUS
     Dosage: UNK
     Route: 042

REACTIONS (3)
  - Off label use [Unknown]
  - Anaphylactoid reaction [Recovered/Resolved]
  - Intentional product use issue [Unknown]
